FAERS Safety Report 14995876 (Version 1)
Quarter: 2018Q2

REPORT INFORMATION
  Report Type: Spontaneous
  Country: US (occurrence: US)
  Receive Date: 20180611
  Receipt Date: 20180611
  Transmission Date: 20180711
  Serious: Yes (Other)
  Sender: FDA-Public Use
  Company Number: US-VIVIMED-2018SP004373

PATIENT

DRUGS (6)
  1. ZINC SULFATE [Suspect]
     Active Substance: ZINC SULFATE\ZINC SULFATE ANHYDROUS
     Indication: VULVOVAGINITIS TRICHOMONAL
     Dosage: UNK
     Route: 067
  2. METRONIDAZOLE. [Suspect]
     Active Substance: METRONIDAZOLE
     Dosage: UNK, HIGH DOSE
     Route: 048
  3. BORIC ACID [Suspect]
     Active Substance: BORIC ACID
     Indication: VULVOVAGINITIS TRICHOMONAL
     Dosage: UNK
     Route: 067
  4. METRONIDAZOLE. [Suspect]
     Active Substance: METRONIDAZOLE
     Dosage: UNK
     Route: 067
  5. TINIDAZOLE. [Suspect]
     Active Substance: TINIDAZOLE
     Indication: VULVOVAGINITIS TRICHOMONAL
     Dosage: UNK
     Route: 048
  6. TINIDAZOLE. [Suspect]
     Active Substance: TINIDAZOLE
     Dosage: UNK
     Route: 067

REACTIONS (1)
  - Drug ineffective [Unknown]
